FAERS Safety Report 7247762-6 (Version None)
Quarter: 2011Q1

REPORT INFORMATION
  Report Type: 
  Country: None (occurrence: None)
  Receive Date: 20110127
  Receipt Date: 20110114
  Transmission Date: 20110831
  Serious: Yes (Hospitalization)
  Sender: FDA-Public Use
  Company Number: SA-MYLANLABS-2011S1001053

PATIENT
  Age: 20 Year
  Sex: Female

DRUGS (1)
  1. CITALOPRAM [Suspect]
     Indication: SUICIDE ATTEMPT
     Dosage: INGESTED 90 TABLETS, 20MG EACH
     Route: 048

REACTIONS (4)
  - SUICIDE ATTEMPT [None]
  - METABOLIC ACIDOSIS [None]
  - INTENTIONAL OVERDOSE [None]
  - GRAND MAL CONVULSION [None]
